FAERS Safety Report 22084495 (Version 1)
Quarter: 2023Q1

REPORT INFORMATION
  Report Type: Spontaneous
  Country: RU (occurrence: None)
  Receive Date: 20230310
  Receipt Date: 20230310
  Transmission Date: 20230418
  Serious: Yes (Other)
  Sender: FDA-Public Use
  Company Number: RU-ROCHE-3301660

PATIENT
  Age: 46 Year
  Sex: Female

DRUGS (6)
  1. ACTEMRA [Suspect]
     Active Substance: TOCILIZUMAB
     Indication: Rheumatoid arthritis
     Route: 065
     Dates: start: 201004, end: 201602
  2. ARAVA [Concomitant]
     Active Substance: LEFLUNOMIDE
     Dates: start: 200905, end: 200907
  3. METHOTREXATE [Concomitant]
     Active Substance: METHOTREXATE
     Route: 030
     Dates: start: 200912
  4. LEFLUNOMIDE [Concomitant]
     Active Substance: LEFLUNOMIDE
     Dates: start: 2021
  5. SIMPONI [Concomitant]
     Active Substance: GOLIMUMAB
     Route: 058
     Dates: start: 20211203
  6. OLOKIZUMAB [Concomitant]
     Active Substance: OLOKIZUMAB
     Route: 058
     Dates: start: 20230217

REACTIONS (19)
  - Leukopenia [Unknown]
  - Thyroid disorder [Unknown]
  - Neutropenia [Unknown]
  - Arthritis [Unknown]
  - Osteoarthritis [Unknown]
  - Mitral valve incompetence [Unknown]
  - Tricuspid valve incompetence [Unknown]
  - Gallbladder disorder [Unknown]
  - Biliary dyskinesia [Unknown]
  - Urticaria [Unknown]
  - Arthralgia [Unknown]
  - Joint stiffness [Unknown]
  - Dyslipidaemia [Unknown]
  - Hepatic steatosis [Unknown]
  - Pulmonary valve incompetence [Unknown]
  - Lymphopenia [Unknown]
  - Osteoarthritis [Unknown]
  - Drug intolerance [Unknown]
  - Rheumatoid nodule [Unknown]

NARRATIVE: CASE EVENT DATE: 20160101
